FAERS Safety Report 10246375 (Version 1)
Quarter: 2014Q2

REPORT INFORMATION
  Report Type: Spontaneous
  Country: US (occurrence: None)
  Receive Date: 20140617
  Receipt Date: 20140617
  Transmission Date: 20141212
  Serious: Yes (Life-Threatening)
  Sender: FDA-Public Use
  Company Number: None

PATIENT
  Age: 40 Year
  Sex: Male
  Weight: 136.08 kg

DRUGS (1)
  1. BYETTA [Suspect]
     Indication: TYPE 2 DIABETES MELLITUS
     Dosage: INJECTION INTO ABD BID TWICE DAILY GIVEN INTO/UNDER THE SKIN
     Route: 058

REACTIONS (2)
  - Tongue neoplasm malignant stage unspecified [None]
  - Lymphoma [None]
